FAERS Safety Report 14789301 (Version 1)
Quarter: 2018Q2

REPORT INFORMATION
  Report Type: Spontaneous
  Country: AU (occurrence: AU)
  Receive Date: 20180423
  Receipt Date: 20180423
  Transmission Date: 20180711
  Serious: Yes (Other)
  Sender: FDA-Public Use
  Company Number: PHHY2018AU069301

PATIENT
  Age: 51 Year
  Sex: Female

DRUGS (1)
  1. ACLASTA [Suspect]
     Active Substance: ZOLEDRONIC ACID
     Indication: PRODUCT USED FOR UNKNOWN INDICATION
     Dosage: UNK
     Route: 065

REACTIONS (6)
  - Headache [Unknown]
  - Myalgia [Unknown]
  - Hypocalcaemia [Unknown]
  - Pyrexia [Unknown]
  - Hypokalaemia [Unknown]
  - Hypoaesthesia [Unknown]
